FAERS Safety Report 12286852 (Version 1)
Quarter: 2016Q2

REPORT INFORMATION
  Report Type: Spontaneous
  Country: US (occurrence: US)
  Receive Date: 20160420
  Receipt Date: 20160420
  Transmission Date: 20160815
  Serious: Yes (Other)
  Sender: FDA-Public Use
  Company Number: US-CELGENEUS-USA-2016044435

PATIENT
  Age: 74 Year
  Sex: Female

DRUGS (2)
  1. REVLIMID [Suspect]
     Active Substance: LENALIDOMIDE
     Indication: PLASMA CELL MYELOMA
     Route: 048
     Dates: start: 20101113
  2. REVLIMID [Suspect]
     Active Substance: LENALIDOMIDE
     Dosage: M,W,F
     Route: 048
     Dates: start: 201107

REACTIONS (2)
  - Nasopharyngitis [Unknown]
  - Contusion [Unknown]

NARRATIVE: CASE EVENT DATE: 201011
